FAERS Safety Report 11432887 (Version 3)
Quarter: 2015Q3

REPORT INFORMATION
  Report Type: Spontaneous
  Country: FR (occurrence: FR)
  Receive Date: 20150828
  Receipt Date: 20150929
  Transmission Date: 20151125
  Serious: Yes (Death)
  Sender: FDA-Public Use
  Company Number: FR-CONCORDIA PHARMACEUTICALS INC.-CO-ZO-FR-2015-050

PATIENT
  Age: 3 Year
  Sex: Female
  Weight: 14.3 kg

DRUGS (3)
  1. SABRIL [Suspect]
     Active Substance: VIGABATRIN
     Indication: EARLY INFANTILE EPILEPTIC ENCEPHALOPATHY WITH BURST-SUPPRESSION
     Route: 065
     Dates: start: 201201, end: 20150816
  2. RIVOTRIL [Suspect]
     Active Substance: CLONAZEPAM
     Indication: EARLY INFANTILE EPILEPTIC ENCEPHALOPATHY WITH BURST-SUPPRESSION
     Route: 065
     Dates: start: 201401, end: 20150816
  3. ZONEGRAN [Suspect]
     Active Substance: ZONISAMIDE
     Indication: SEIZURE
     Route: 048
     Dates: start: 201401, end: 20150816

REACTIONS (2)
  - Off label use [Fatal]
  - Respiratory distress [Fatal]

NARRATIVE: CASE EVENT DATE: 20150816
